FAERS Safety Report 4437536-3 (Version None)
Quarter: 2004Q3

REPORT INFORMATION
  Report Type: 
  Country: None (occurrence: None)
  Receive Date: 20040827
  Receipt Date: 20040823
  Transmission Date: 20050211
  Serious: Yes (Life-Threatening, Hospitalization, Disabling)
  Sender: FDA-Public Use
  Company Number: GBWYE994523AUG04

PATIENT
  Age: 33 Year
  Sex: Female

DRUGS (4)
  1. EFFEXOR [Suspect]
     Indication: BIPOLAR DISORDER
     Dosage: 150 MG 1X PER 1 DAY ORAL
     Route: 048
     Dates: start: 20030901, end: 20040805
  2. DIANETTE (CYPROTERONE ACETATE/ETHINYLESTRADIOL, , 0) [Suspect]
     Dosage: ORAL
     Route: 048
     Dates: start: 20040101, end: 20040805
  3. LITHIUM (LITHIUM, , 0) [Suspect]
     Indication: BIPOLAR DISORDER
     Dosage: 800 MG 1X PER 1 DAY ORAL
     Route: 048
     Dates: start: 20010101, end: 20040805
  4. RISPERIDONE [Suspect]
     Indication: BIPOLAR DISORDER
     Dosage: 3 MG 1X PER 1 DAY ORAL
     Route: 048
     Dates: start: 20020101, end: 20040805

REACTIONS (2)
  - PANCREATITIS [None]
  - RENAL TUBULAR NECROSIS [None]
